FAERS Safety Report 4958780-2 (Version None)
Quarter: 2006Q1

REPORT INFORMATION
  Report Type: 
  Country: None (occurrence: None)
  Receive Date: 20060127
  Receipt Date: 20041218
  Transmission Date: 20060701
  Serious: Yes (Death)
  Sender: FDA-Public Use
  Company Number: 04-12-1811

PATIENT
  Age: 48 Year
  Sex: Female

DRUGS (4)
  1. CLOZAPINE [Suspect]
     Dosage: 225MG QD, ORAL
     Route: 048
     Dates: start: 20041101, end: 20041201
  2. PLAVIX [Concomitant]
  3. LORATADINE [Concomitant]
  4. CYPROHEPTADINE HCL [Concomitant]

REACTIONS (1)
  - UNEVALUABLE EVENT [None]
